FAERS Safety Report 5939567-0 (Version None)
Quarter: 2008Q4

REPORT INFORMATION
  Report Type: 
  Country: None (occurrence: None)
  Receive Date: 20081030
  Receipt Date: 20081021
  Transmission Date: 20090506
  Serious: Yes (Other)
  Sender: FDA-Public Use
  Company Number: 2008AP002850

PATIENT
  Sex: Female

DRUGS (2)
  1. CITALOPRAM HYDROBROMIDE [Suspect]
     Indication: DEPRESSION
     Dosage: 10 MG;PO
     Route: 048
     Dates: start: 20080618, end: 20080808
  2. OMEPRAZOLE [Concomitant]

REACTIONS (3)
  - DISSOCIATION [None]
  - INDIFFERENCE [None]
  - SELF-INJURIOUS IDEATION [None]
